FAERS Safety Report 5867616-7 (Version None)
Quarter: 2008Q3

REPORT INFORMATION
  Report Type: 
  Country: None (occurrence: None)
  Receive Date: 20080902
  Receipt Date: 20080821
  Transmission Date: 20090109
  Serious: Yes (Death)
  Sender: FDA-Public Use
  Company Number: GB-BAXTER-2008BH008985

PATIENT
  Age: 77 Year
  Sex: Female

DRUGS (1)
  1. LIDOCAINE HCL IN 5% DEXTROSE INJECTION IN PLASTIC CONTAINER [Suspect]
     Indication: WRONG DRUG ADMINISTERED
     Dosage: DOSE UNIT:UNKNOWN
     Route: 042
     Dates: start: 20060901

REACTIONS (3)
  - DRUG TOXICITY [None]
  - MEDICATION ERROR [None]
  - WRONG DRUG ADMINISTERED [None]
